FAERS Safety Report 10514510 (Version 3)
Quarter: 2015Q2

REPORT INFORMATION
  Report Type: Spontaneous
  Country: US (occurrence: US)
  Receive Date: 20141013
  Receipt Date: 20150501
  Transmission Date: 20150821
  Serious: Yes (Hospitalization)
  Sender: FDA-Public Use
  Company Number: US-BAYER-2014-149933

PATIENT
  Age: 26 Year
  Sex: Female
  Weight: 66 kg

DRUGS (2)
  1. TORADOL [Concomitant]
     Active Substance: KETOROLAC TROMETHAMINE
     Dosage: 15 MG, UNK
  2. MIRENA [Suspect]
     Active Substance: LEVONORGESTREL
     Indication: CONTRACEPTION
     Dosage: 20 MCG/24HR, CONT
     Route: 015
     Dates: start: 20070828, end: 20100219

REACTIONS (9)
  - Uterine perforation [None]
  - Abdominal adhesions [None]
  - Device breakage [None]
  - Depression [None]
  - Pelvic discomfort [None]
  - Pelvic pain [None]
  - Emotional distress [None]
  - Injury [None]
  - Anxiety [None]

NARRATIVE: CASE EVENT DATE: 20070828
